FAERS Safety Report 6931350-2 (Version None)
Quarter: 2010Q3

REPORT INFORMATION
  Report Type: 
  Country: None (occurrence: None)
  Receive Date: 20100819
  Receipt Date: 20100809
  Transmission Date: 20110219
  Serious: Yes (Other)
  Sender: FDA-Public Use
  Company Number: KR-PFIZER INC-2010100388

PATIENT
  Age: 53 Year
  Sex: Male

DRUGS (1)
  1. FLUCONAZOLE [Suspect]
     Dosage: UNK

REACTIONS (3)
  - DRUG INTERACTION [None]
  - PERITONEAL HAEMORRHAGE [None]
  - POISONING [None]
